FAERS Safety Report 10168858 (Version 1)
Quarter: 2014Q2

REPORT INFORMATION
  Report Type: Spontaneous
  Country: CH (occurrence: CH)
  Receive Date: 20140513
  Receipt Date: 20140513
  Transmission Date: 20141212
  Serious: Yes (Life-Threatening, Hospitalization, Other)
  Sender: FDA-Public Use
  Company Number: CH-ELI_LILLY_AND_COMPANY-CH201405002864

PATIENT
  Age: 54 Year
  Sex: Male

DRUGS (3)
  1. ZYPREXA [Suspect]
     Indication: BIPOLAR DISORDER
     Dosage: 2.5 MG, TID
     Route: 048
     Dates: start: 2000, end: 20140120
  2. ANAFRANIL [Suspect]
     Indication: BIPOLAR DISORDER
     Dosage: 150 MG, QD
     Route: 048
     Dates: start: 2000, end: 20140120
  3. LITHIOFOR [Suspect]
     Indication: BIPOLAR DISORDER
     Dosage: 660 MG, BID
     Route: 048
     Dates: start: 2000, end: 20140120

REACTIONS (19)
  - Serotonin syndrome [Not Recovered/Not Resolved]
  - Altered state of consciousness [Not Recovered/Not Resolved]
  - Bronchopneumonia [Not Recovered/Not Resolved]
  - Renal failure [Not Recovered/Not Resolved]
  - Agitation [Not Recovered/Not Resolved]
  - Pyrexia [Not Recovered/Not Resolved]
  - Clonus [Not Recovered/Not Resolved]
  - Muscle rigidity [Not Recovered/Not Resolved]
  - Hyperreflexia [Not Recovered/Not Resolved]
  - Tachypnoea [Not Recovered/Not Resolved]
  - Akathisia [Not Recovered/Not Resolved]
  - Hypertonia [Not Recovered/Not Resolved]
  - Drug level increased [Unknown]
  - Antipsychotic drug level increased [Unknown]
  - Transaminases increased [Unknown]
  - Blood alkaline phosphatase increased [Unknown]
  - Gamma-glutamyltransferase increased [Unknown]
  - Blood creatinine increased [Unknown]
  - Overdose [Unknown]
